FAERS Safety Report 8420756 (Version 5)
Quarter: 2012Q4

REPORT INFORMATION
  Report Type: 
  Country: US (occurrence: US)
  Receive Date: 20120222
  Receipt Date: 20121101
  Transmission Date: 20130627
  Serious: Yes (Hospitalization, Disabling, Other)
  Sender: FDA-Public Use
  Company Number: US-009507513-1202USA02807

PATIENT

DRUGS (8)
  1. FOSAMAX [Suspect]
     Indication: OSTEOPOROSIS
     Dosage: 70 mg,qw
     Route: 048
     Dates: start: 20031210, end: 200802
  2. FOSAMAX [Suspect]
     Indication: OSTEOPOROSIS
     Dosage: 70 mg, UNK
     Route: 048
     Dates: start: 200811, end: 200911
  3. ALENDRONATE TEVA [Suspect]
     Dosage: 70 mg, qw
     Route: 048
     Dates: start: 20080219
  4. SERTRALINE HYDROCHLORIDE [Concomitant]
     Dosage: UNK
     Dates: start: 1996
  5. LEXAPRO [Concomitant]
     Dosage: UNK
     Dates: start: 2004
  6. TRAZODONE HYDROCHLORIDE [Concomitant]
     Dosage: UNK
     Dates: start: 2006
  7. CYMBALTA [Concomitant]
     Dosage: UNK
  8. FEXOFENADINE HYDROCHLORIDE [Concomitant]

REACTIONS (58)
  - Femur fracture [Unknown]
  - Cholecystectomy [Unknown]
  - Acute pulmonary oedema [Unknown]
  - Hepatitis C [Not Recovered/Not Resolved]
  - Hysterectomy [Unknown]
  - Depression [Unknown]
  - Patient-device incompatibility [Unknown]
  - Laparoscopy [Unknown]
  - Hot flush [Unknown]
  - Low turnover osteopathy [Unknown]
  - Tooth disorder [Unknown]
  - Anxiety [Unknown]
  - Sinus disorder [Unknown]
  - Hypertension [Unknown]
  - Chest pain [Unknown]
  - Osteopenia [Unknown]
  - Spinal compression fracture [Unknown]
  - Urinary tract infection [Unknown]
  - Cardiac murmur [Unknown]
  - Skin lesion [Unknown]
  - Premature menopause [Unknown]
  - Arthritis [Unknown]
  - Intervertebral disc degeneration [Unknown]
  - Plantar fasciitis [Unknown]
  - Haemorrhoids [Unknown]
  - Hyperhidrosis [Unknown]
  - Hepatic cirrhosis [Unknown]
  - Chronic obstructive pulmonary disease [Not Recovered/Not Resolved]
  - Renal aplasia [Unknown]
  - Obsessive-compulsive disorder [Unknown]
  - Dermatitis artefacta [Unknown]
  - Insomnia [Unknown]
  - Herpes simplex [Unknown]
  - Eczema [Unknown]
  - Thrombocytopenia [Unknown]
  - Adverse event [Unknown]
  - Neutropenia [Unknown]
  - Adverse event [Unknown]
  - Urinary retention [Unknown]
  - Suture removal [Unknown]
  - Wound drainage [Unknown]
  - Ingrowing nail [Unknown]
  - Weight decreased [Unknown]
  - Bursitis [Unknown]
  - Eye irritation [Unknown]
  - Device extrusion [Unknown]
  - Arthralgia [Unknown]
  - Pain in extremity [Unknown]
  - Dyspepsia [Unknown]
  - Gastrooesophageal reflux disease [Unknown]
  - Rash [Unknown]
  - Back pain [Unknown]
  - Constipation [Unknown]
  - Headache [Unknown]
  - Arthralgia [Unknown]
  - Oedema peripheral [Recovered/Resolved]
  - Oedema peripheral [Unknown]
  - Kidney infection [Unknown]
